FAERS Safety Report 4331848-X (Version None)
Quarter: 2004Q2

REPORT INFORMATION
  Report Type: 
  Country: None (occurrence: None)
  Receive Date: 20040405
  Receipt Date: 20031119
  Transmission Date: 20050107
  Serious: No
  Sender: FDA-Public Use
  Company Number: US-GLAXOSMITHKLINE-A0440378A

PATIENT
  Age: 72 Year
  Sex: Female

DRUGS (3)
  1. FLOVENT [Suspect]
     Indication: ASTHMA
     Dosage: 2PUFF PER DAY
     Route: 055
     Dates: start: 20031001, end: 20031101
  2. SEREVENT [Concomitant]
  3. CORTICOSTEROID [Concomitant]

REACTIONS (2)
  - COUGH [None]
  - OBSTRUCTIVE AIRWAYS DISORDER [None]
